FAERS Safety Report 17432059 (Version 2)
Quarter: 2020Q2

REPORT INFORMATION
  Report Type: Spontaneous
  Country: US (occurrence: US)
  Receive Date: 20200218
  Receipt Date: 20200401
  Transmission Date: 20200713
  Serious: No
  Sender: FDA-Public Use
  Company Number: US-BAUSCH-BL-2020-004135

PATIENT
  Age: 87 Year
  Sex: Female

DRUGS (1)
  1. LUMIFY [Suspect]
     Active Substance: BRIMONIDINE TARTRATE
     Indication: OCULAR HYPERAEMIA
     Dosage: START DATE: APPROXIMATELY 6 MONTHS AGO FROM DATE OF REPORT, AS NEEDED, MORNING, USED ALMOST DAILY
     Route: 047
     Dates: start: 2019

REACTIONS (2)
  - Product container issue [Unknown]
  - Therapeutic product effect decreased [Unknown]
